FAERS Safety Report 13483880 (Version 1)
Quarter: 2017Q2

REPORT INFORMATION
  Report Type: Spontaneous
  Country: US (occurrence: US)
  Receive Date: 20170425
  Receipt Date: 20170425
  Transmission Date: 20170830
  Serious: Yes (Disabling)
  Sender: FDA-Public Use
  Company Number: None

PATIENT
  Age: 60 Year
  Sex: Male
  Weight: 101.2 kg

DRUGS (5)
  1. ERYTHROMYCIN 500MG FILMTAB [Suspect]
     Active Substance: ERYTHROMYCIN
     Indication: INFECTION
     Dosage: ?          QUANTITY:20 TABLET(S);?
     Route: 048
     Dates: start: 20170125, end: 20170131
  2. ADVIL [Concomitant]
     Active Substance: IBUPROFEN
  3. TYLENOL [Concomitant]
     Active Substance: ACETAMINOPHEN
  4. OMEGA 3 [Concomitant]
     Active Substance: OMEGA-3 FATTY ACIDS
  5. FISH OIL [Concomitant]
     Active Substance: FISH OIL

REACTIONS (5)
  - Back pain [None]
  - Musculoskeletal stiffness [None]
  - Musculoskeletal pain [None]
  - Arthralgia [None]
  - Drug effect incomplete [None]

NARRATIVE: CASE EVENT DATE: 20170131
